FAERS Safety Report 5679407-0 (Version None)
Quarter: 2008Q1

REPORT INFORMATION
  Report Type: 
  Country: None (occurrence: None)
  Receive Date: 20080325
  Receipt Date: 20080318
  Transmission Date: 20080703
  Serious: Yes (Death, Other)
  Sender: FDA-Public Use
  Company Number: GB-PURDUE-GBR_2008_0003840

PATIENT
  Age: 66 Year
  Sex: Male

DRUGS (11)
  1. OXYCODONE HYDROCHLORIDE [Suspect]
     Indication: MUSCULOSKELETAL PAIN
     Dosage: 80 MG, UNK
     Route: 065
     Dates: start: 20070601
  2. OXYCODONE HYDROCHLORIDE [Suspect]
     Route: 065
     Dates: end: 20070416
  3. ACETAMINOPHEN [Suspect]
     Indication: DRUG USE FOR UNKNOWN INDICATION
     Route: 065
     Dates: start: 20070601
  4. CITALOPRAM [Suspect]
     Indication: DEPRESSION
     Route: 065
     Dates: start: 20070402
  5. CITALOPRAM [Suspect]
     Dosage: 20 MG, UNK
     Route: 065
     Dates: start: 20070601
  6. ETORICOXIB [Suspect]
     Indication: MUSCULOSKELETAL PAIN
     Dosage: 90 MG, UNK
     Route: 048
     Dates: start: 20070601
  7. ETORICOXIB [Suspect]
     Route: 065
     Dates: start: 20070322
  8. MIRTAZAPINE [Suspect]
     Indication: DRUG USE FOR UNKNOWN INDICATION
     Dosage: UNK, UNK
     Route: 065
     Dates: start: 20070601
  9. DICLOFENAC SODIUM [Concomitant]
     Indication: MUSCULOSKELETAL PAIN
     Dosage: 150 MG, UNK
     Route: 065
     Dates: start: 20070223
  10. DIHYDROCODEINE [Concomitant]
     Indication: MUSCULOSKELETAL PAIN
     Dosage: 90 MG, UNK
     Route: 065
     Dates: start: 20070219
  11. OXAZEPAM [Concomitant]
     Indication: ANXIETY
     Dosage: 30 MG, UNK
     Route: 065
     Dates: start: 20070115

REACTIONS (3)
  - CORONARY ARTERY DISEASE [None]
  - DRUG INTERACTION [None]
  - OVERDOSE [None]
